FAERS Safety Report 6078283-4 (Version None)
Quarter: 2009Q1

REPORT INFORMATION
  Report Type: 
  Country: None (occurrence: None)
  Receive Date: 20090213
  Receipt Date: 20090131
  Transmission Date: 20090719
  Serious: Yes (Death, Other)
  Sender: FDA-Public Use
  Company Number: GB-GENENTECH-276572

PATIENT
  Sex: Male

DRUGS (3)
  1. LUCENTIS [Suspect]
     Indication: DRUG USE FOR UNKNOWN INDICATION
     Dosage: 0.05 MG, UNK
     Route: 031
     Dates: start: 20080110
  2. XALATAN [Concomitant]
     Indication: DRUG USE FOR UNKNOWN INDICATION
  3. CHEMOTHERAPY (UNK INGREDIENTS) [Concomitant]
     Indication: COLON CANCER

REACTIONS (1)
  - DEATH [None]
